FAERS Safety Report 4336391-X (Version None)
Quarter: 2004Q2

REPORT INFORMATION
  Report Type: 
  Country: None (occurrence: None)
  Receive Date: 20040412
  Receipt Date: 20040407
  Transmission Date: 20050107
  Serious: Yes (Death, Life-Threatening, Other)
  Sender: FDA-Public Use
  Company Number: PHBS2004SE04701

PATIENT
  Age: 82 Year
  Sex: Male

DRUGS (6)
  1. TEGRETOL [Suspect]
     Indication: CONVULSION
     Route: 048
     Dates: start: 20030901, end: 20031101
  2. CLINDAMYCIN HCL [Suspect]
     Indication: INFECTION PARASITIC
     Route: 065
     Dates: start: 20031001, end: 20031001
  3. SELEXID [Suspect]
     Indication: INFECTION PARASITIC
     Route: 065
     Dates: start: 20031010, end: 20031026
  4. ZINACEF [Suspect]
     Indication: INFECTION PARASITIC
     Route: 065
     Dates: start: 20031001, end: 20031001
  5. ERYMAX [Suspect]
     Indication: INFECTION PARASITIC
     Route: 065
     Dates: start: 20031011, end: 20031016
  6. STEROIDS NOS [Concomitant]

REACTIONS (20)
  - ABSCESS [None]
  - ATRIOVENTRICULAR BLOCK COMPLETE [None]
  - CHILLS [None]
  - DERMATITIS ALLERGIC [None]
  - DERMATITIS EXFOLIATIVE [None]
  - ENDOCARDITIS [None]
  - EXANTHEM [None]
  - FATIGUE [None]
  - HYPERSENSITIVITY [None]
  - LIVER FUNCTION TEST ABNORMAL [None]
  - LUNG INFILTRATION [None]
  - PETIT MAL EPILEPSY [None]
  - PYREXIA [None]
  - RENAL INFARCT [None]
  - SHOCK [None]
  - SKIN REACTION [None]
  - SPLEEN DISORDER [None]
  - SPLENOMEGALY [None]
  - STAPHYLOCOCCAL INFECTION [None]
  - URINARY TRACT INFECTION [None]
